FAERS Safety Report 11320024 (Version 1)
Quarter: 2015Q3

REPORT INFORMATION
  Report Type: Spontaneous
  Country: US (occurrence: None)
  Receive Date: 20150728
  Receipt Date: 20150728
  Transmission Date: 20151125
  Serious: Yes (Disabling)
  Sender: FDA-Public Use
  Company Number: None

PATIENT
  Age: 53 Year
  Sex: Male
  Weight: 115.67 kg

DRUGS (1)
  1. LEVOFLOXACIN 500 MG LUPIN [Suspect]
     Active Substance: LEVOFLOXACIN
     Indication: BRONCHITIS
     Dosage: TAKEN BY MOUTH
     Dates: start: 20150427, end: 20150428

REACTIONS (2)
  - Ligament pain [None]
  - Tendon pain [None]

NARRATIVE: CASE EVENT DATE: 20150427
